FAERS Safety Report 6210044-5 (Version None)
Quarter: 2009Q2

REPORT INFORMATION
  Report Type: 
  Country: None (occurrence: None)
  Receive Date: 20090601
  Receipt Date: 20090526
  Transmission Date: 20091009
  Serious: Yes (Other)
  Sender: FDA-Public Use
  Company Number: PHHY2009DE20532

PATIENT
  Sex: Female

DRUGS (3)
  1. RASILEZ [Suspect]
     Indication: HYPERTENSION
     Dosage: 1 DF, QD
     Dates: start: 20090501, end: 20090525
  2. RASILEZ [Interacting]
     Dosage: 1 DF, BID
     Dates: start: 20090526
  3. TOFRANIL [Interacting]
     Indication: DEPRESSION
     Dosage: UNK
     Dates: start: 20090525

REACTIONS (3)
  - BLOOD PRESSURE SYSTOLIC INCREASED [None]
  - DRUG INTERACTION [None]
  - MYALGIA [None]
